FAERS Safety Report 7952225-6 (Version None)
Quarter: 2011Q4

REPORT INFORMATION
  Report Type: 
  Country: None (occurrence: None)
  Receive Date: 20111201
  Receipt Date: 20111120
  Transmission Date: 20120403
  Serious: No
  Sender: FDA-Public Use
  Company Number: US-BAYER-2011-112871

PATIENT
  Age: 65 Year
  Sex: Female
  Weight: 67 kg

DRUGS (4)
  1. ALEVE (CAPLET) [Suspect]
     Indication: HERPES ZOSTER
     Dosage: 2 CAPLETS
     Route: 048
     Dates: start: 20111119, end: 20111119
  2. FEMARA [Concomitant]
  3. ANACIN [Concomitant]
  4. ACETYLSALICYLIC ACID W/CAFFEINE/SALICYLAMIDE [Concomitant]

REACTIONS (1)
  - DRUG INEFFECTIVE [None]
